FAERS Safety Report 8376032-8 (Version None)
Quarter: 2012Q2

REPORT INFORMATION
  Report Type: 
  Country: None (occurrence: None)
  Receive Date: 20120517
  Receipt Date: 20120507
  Transmission Date: 20120825
  Serious: Yes (Hospitalization)
  Sender: FDA-Public Use
  Company Number: 2012MA006080

PATIENT
  Age: 66 Year
  Sex: Male

DRUGS (2)
  1. RAMIPRIL [Concomitant]
  2. RAMIPRIL [Suspect]

REACTIONS (1)
  - RENAL PAIN [None]
